FAERS Safety Report 7635917-8 (Version None)
Quarter: 2011Q3

REPORT INFORMATION
  Report Type: 
  Country: None (occurrence: None)
  Receive Date: 20110719
  Receipt Date: 20110707
  Transmission Date: 20111222
  Serious: Yes (Other)
  Sender: FDA-Public Use
  Company Number: DSA_47156_2011

PATIENT
  Sex: Female

DRUGS (3)
  1. LYRICA [Concomitant]
  2. BUPROPION HYDROCHLORIDE [Suspect]
     Indication: PRODUCT USED FOR UNKNOWN INDICATION
     Dosage: (DF)
     Dates: start: 20110501, end: 20110101
  3. EFFEXOR XR [Concomitant]

REACTIONS (2)
  - HIP FRACTURE [None]
  - FALL [None]
